FAERS Safety Report 9275144 (Version 2)
Quarter: 2013Q2

REPORT INFORMATION
  Report Type: Spontaneous
  Country: CN (occurrence: CN)
  Receive Date: 20130507
  Receipt Date: 20130509
  Transmission Date: 20140414
  Serious: Yes (Hospitalization, Other)
  Sender: FDA-Public Use
  Company Number: CN-PFIZER INC-2013138684

PATIENT
  Age: 61 Year
  Sex: Female

DRUGS (1)
  1. TAZOCIN [Suspect]
     Indication: PROPHYLAXIS
     Dosage: UNK
     Route: 041
     Dates: start: 201303

REACTIONS (3)
  - Dermatitis bullous [Unknown]
  - Hypersensitivity [Unknown]
  - Necrosis [Recovered/Resolved]
